FAERS Safety Report 4380146-7 (Version None)
Quarter: 2004Q2

REPORT INFORMATION
  Report Type: 
  Country: None (occurrence: None)
  Receive Date: 20040614
  Receipt Date: 20040331
  Transmission Date: 20050107
  Serious: No
  Sender: FDA-Public Use
  Company Number: M04-341-101

PATIENT
  Age: 66 Year
  Sex: Female
  Weight: 63 kg

DRUGS (6)
  1. VELCADE [Suspect]
     Indication: MULTIPLE MYELOMA
     Dosage: 1.3 MG/M2 DAYS 1, 4, 8, 11: INTRAVENOUS
     Route: 042
  2. ACIPHEX [Concomitant]
  3. ANASTROZOLE [Concomitant]
  4. LEVOFLOXACIN [Concomitant]
  5. PROCRIT(ERYTHROPOIETIN) [Concomitant]
  6. SULFAMETHOXAZOLE [Concomitant]

REACTIONS (4)
  - CATHETER SITE INFLAMMATION [None]
  - ERYTHEMA [None]
  - PRURITUS [None]
  - RASH [None]
